FAERS Safety Report 9442454 (Version 1)
Quarter: 2013Q3

REPORT INFORMATION
  Report Type: Spontaneous
  Country: US (occurrence: None)
  Receive Date: 20130805
  Receipt Date: 20130805
  Transmission Date: 20140515
  Serious: Yes (Other)
  Sender: FDA-Public Use
  Company Number: None

PATIENT
  Age: 61 Year
  Sex: Female

DRUGS (1)
  1. SEROQUEL [Suspect]
     Indication: BIPOLAR II DISORDER
     Dosage: 600 MG AT BEDTIME PO
     Route: 048
     Dates: start: 2012

REACTIONS (4)
  - Cognitive disorder [None]
  - Product substitution issue [None]
  - Depression [None]
  - Feeling abnormal [None]
